FAERS Safety Report 16768021 (Version 1)
Quarter: 2019Q3

REPORT INFORMATION
  Report Type: Spontaneous
  Country: CN (occurrence: CN)
  Receive Date: 20190903
  Receipt Date: 20190903
  Transmission Date: 20191005
  Serious: Yes (Other)
  Sender: FDA-Public Use
  Company Number: CN-BAXTER-2019BAX017111

PATIENT
  Age: 54 Year
  Sex: Female
  Weight: 58.6 kg

DRUGS (12)
  1. 0.9% SODIUM CHLORIDE INJECTION [Suspect]
     Active Substance: SODIUM CHLORIDE
     Dosage: DOSE RE-INTRODUCED. ENDOXAN + SODIUM CHLORIDE
     Route: 041
  2. SODIUM CHLORIDE. [Suspect]
     Active Substance: SODIUM CHLORIDE
     Dosage: FOURTH ADJUVANT CHEMOTHERAPY. PHARMORUBICIN RD 120 MG + SODIUM CHLORIDE 150 ML
     Route: 041
     Dates: start: 20190724, end: 20190724
  3. ENDOXAN [Suspect]
     Active Substance: CYCLOPHOSPHAMIDE
     Dosage: FOURTH ADJUVANT CHEMOTHERAPY. ENDOXAN 0.9 G + SODIUM CHLORIDE 100 ML
     Route: 041
     Dates: start: 20190724, end: 20190724
  4. PHARMORUBICIN RD [Suspect]
     Active Substance: EPIRUBICIN
     Dosage: DOSE RE-INTRODUCED. PHARMORUBICIN RD + SODIUM CHLORIDE
     Route: 041
  5. 0.9% SODIUM CHLORIDE INJECTION [Suspect]
     Active Substance: SODIUM CHLORIDE
     Indication: MEDICATION DILUTION
     Dosage: 1 TO 3 ADJUVANT CHEMOTHERAPIES
     Route: 041
  6. ENDOXAN [Suspect]
     Active Substance: CYCLOPHOSPHAMIDE
     Indication: BREAST CANCER
     Dosage: 1 TO 3 ADJUVANT CHEMOTHERAPIES, ENDOXAN + SODIUM CHLORIDE
     Route: 041
  7. SODIUM CHLORIDE. [Suspect]
     Active Substance: SODIUM CHLORIDE
     Indication: MEDICATION DILUTION
     Dosage: 1 TO 3 ADJUVANT CHEMOTHERAPIES. PHARMORUBICIN RD + SODIUM CHLORIDE
     Route: 041
  8. ENDOXAN [Suspect]
     Active Substance: CYCLOPHOSPHAMIDE
     Dosage: DOSE RE-INTRODUCED. ENDOXAN + SODIUM CHLORIDE
     Route: 041
  9. PHARMORUBICIN RD [Suspect]
     Active Substance: EPIRUBICIN
     Dosage: FOURTH ADJUVANT CHEMOTHERAPY. PHARMORUBICIN RD 120 MG + SODIUM CHLORIDE 150 ML
     Route: 041
     Dates: start: 20190724, end: 20190724
  10. 0.9% SODIUM CHLORIDE INJECTION [Suspect]
     Active Substance: SODIUM CHLORIDE
     Dosage: FOURTH ADJUVANT CHEMOTHERAPY. ENDOXAN 0.9 G + SODIUM CHLORIDE 100 ML
     Route: 041
     Dates: start: 20190724, end: 20190724
  11. PHARMORUBICIN RD [Suspect]
     Active Substance: EPIRUBICIN
     Indication: BREAST CANCER
     Dosage: 1 TO 3 ADJUVANT CHEMOTHERAPIES. PHARMORUBICIN RD + SODIUM CHLORIDE
     Route: 041
  12. SODIUM CHLORIDE. [Suspect]
     Active Substance: SODIUM CHLORIDE
     Dosage: DOSE RE-INTRODUCED. PHARMORUBICIN RD + SODIUM CHLORIDE
     Route: 041

REACTIONS (5)
  - Nausea [Recovered/Resolved]
  - Vomiting [Recovered/Resolved]
  - Nausea [Recovered/Resolved]
  - Bone marrow failure [Unknown]
  - Vomiting [Recovered/Resolved]

NARRATIVE: CASE EVENT DATE: 20190724
